FAERS Safety Report 7060699-0 (Version None)
Quarter: 2010Q4

REPORT INFORMATION
  Report Type: 
  Country: None (occurrence: None)
  Receive Date: 20101025
  Receipt Date: 20101022
  Transmission Date: 20110411
  Serious: Yes (Hospitalization)
  Sender: FDA-Public Use
  Company Number: AR-ROCHE-735702

PATIENT
  Sex: Female

DRUGS (4)
  1. HERCEPTIN [Suspect]
     Indication: BREAST CANCER
     Route: 042
     Dates: start: 20101015
  2. CAPECITABINE [Concomitant]
     Indication: BREAST CANCER
     Route: 048
     Dates: start: 20100901
  3. DIFENILHIDANTOINA [Concomitant]
     Indication: BREAST CANCER
     Dates: start: 20100901
  4. CORTICOSTEROIDS [Concomitant]
     Dosage: CORTICOID THERAPY

REACTIONS (1)
  - DERMATITIS EXFOLIATIVE [None]
